APPROVED DRUG PRODUCT: AVACLYR
Active Ingredient: ACYCLOVIR
Strength: 3% **Federal Register determination that product was not discontinued or withdrawn for safety or effectiveness reasons**
Dosage Form/Route: OINTMENT;OPHTHALMIC
Application: N202408 | Product #001
Applicant: FERA PHARMACEUTICALS LLC
Approved: Mar 29, 2019 | RLD: Yes | RS: No | Type: DISCN

EXCLUSIVITY:
Code: ODE-235 | Date: Mar 29, 2026